FAERS Safety Report 21285928 (Version 1)
Quarter: 2022Q3

REPORT INFORMATION
  Report Type: Spontaneous
  Country: IN (occurrence: IN)
  Receive Date: 20220902
  Receipt Date: 20220902
  Transmission Date: 20221026
  Serious: Yes (Other)
  Sender: FDA-Public Use
  Company Number: IN-PFIZER INC-PV202200054453

PATIENT
  Age: 76 Year
  Sex: Female

DRUGS (3)
  1. PALBOCICLIB [Suspect]
     Active Substance: PALBOCICLIB
     Indication: Breast cancer metastatic
     Dosage: 125 MG, 1X/DAY
     Route: 048
     Dates: start: 20211206
  2. LETROZOLE [Concomitant]
     Active Substance: LETROZOLE
  3. DENOSUMAB [Concomitant]
     Active Substance: DENOSUMAB

REACTIONS (4)
  - Polyneuropathy [Unknown]
  - Asthenia [Unknown]
  - Pain in extremity [Unknown]
  - Neoplasm progression [Unknown]
